FAERS Safety Report 7450284-0 (Version None)
Quarter: 2011Q2

REPORT INFORMATION
  Report Type: 
  Country: None (occurrence: None)
  Receive Date: 20110502
  Receipt Date: 20100621
  Transmission Date: 20111010
  Serious: Yes (Hospitalization, Other)
  Sender: FDA-Public Use
  Company Number: US-BAYER-200938572NA

PATIENT
  Age: 30 Year
  Sex: Female
  Weight: 54.422 kg

DRUGS (4)
  1. CLARITIN [Concomitant]
     Indication: SEASONAL ALLERGY
     Dosage: UNK UNK, PRN
     Route: 048
  2. PRENATAL VITAMINS [Concomitant]
     Indication: SUPPLEMENTATION THERAPY
     Dosage: UNK
     Route: 048
     Dates: start: 20050101, end: 20090101
  3. TUMS [CALCIUM CARBONATE] [Concomitant]
     Indication: ABDOMINAL PAIN UPPER
     Dosage: UNK UNK, PRN
     Route: 048
     Dates: start: 20070101, end: 20080101
  4. YASMIN [Suspect]
     Indication: CONTRACEPTION
     Dosage: UNK
     Route: 048
     Dates: start: 20050101, end: 20090101

REACTIONS (9)
  - ABDOMINAL PAIN [None]
  - VOMITING [None]
  - NEPHROLITHIASIS [None]
  - HYDROURETER [None]
  - NAUSEA [None]
  - CHOLECYSTITIS CHRONIC [None]
  - CHOLELITHIASIS [None]
  - FLANK PAIN [None]
  - HYDRONEPHROSIS [None]
